FAERS Safety Report 18972752 (Version 1)
Quarter: 2021Q1

REPORT INFORMATION
  Report Type: Spontaneous
  Country: JP (occurrence: JP)
  Receive Date: 20210305
  Receipt Date: 20210305
  Transmission Date: 20210420
  Serious: Yes (Other)
  Sender: FDA-Public Use
  Company Number: JP-ACCORD-216488

PATIENT
  Age: 76 Year
  Sex: Female

DRUGS (2)
  1. LEVOFOLINATE [Concomitant]
     Active Substance: LEVOLEUCOVORIN CALCIUM
     Indication: COLON CANCER
     Dosage: DAY 1, EVERY 2 WEEKS
  2. FLUOROURACIL. [Suspect]
     Active Substance: FLUOROURACIL
     Indication: COLON CANCER
     Dosage: ON DAY 1, EVERY 2 WEEKS

REACTIONS (1)
  - Hyperammonaemia [Recovered/Resolved]
